FAERS Safety Report 8114086-4 (Version None)
Quarter: 2012Q1

REPORT INFORMATION
  Report Type: 
  Country: None (occurrence: None)
  Receive Date: 20120203
  Receipt Date: 20101004
  Transmission Date: 20120608
  Serious: Yes (Hospitalization)
  Sender: FDA-Public Use
  Company Number: PHHY2010FR66838

PATIENT
  Sex: Female

DRUGS (4)
  1. ESIDRIX [Concomitant]
     Indication: HYPERTENSION
  2. EXELON [Suspect]
     Indication: DEMENTIA ALZHEIMER'S TYPE
     Dosage: 9.5 MG
     Route: 062
     Dates: start: 20100910
  3. RAMIPRIL [Concomitant]
     Indication: HYPERTENSION
  4. EXELON [Suspect]
     Dosage: 9.5 MG FIVE PATCHES
     Route: 062
     Dates: start: 20100914

REACTIONS (9)
  - HYPERTENSION [None]
  - ABDOMINAL PAIN [None]
  - DISORIENTATION [None]
  - AGITATION [None]
  - LEUKOCYTOSIS [None]
  - VOMITING [None]
  - HALLUCINATION [None]
  - INCORRECT DOSE ADMINISTERED [None]
  - SINUS TACHYCARDIA [None]
